FAERS Safety Report 24967967 (Version 2)
Quarter: 2025Q2

REPORT INFORMATION
  Report Type: Report from Study
  Country: US (occurrence: US)
  Receive Date: 20250214
  Receipt Date: 20250415
  Transmission Date: 20250716
  Serious: Yes (Death, Hospitalization)
  Sender: ARDELYX
  Company Number: US-ARDELYX-2025ARDX000726

PATIENT
  Age: 56 Year
  Sex: Female

DRUGS (1)
  1. XPHOZAH [Suspect]
     Active Substance: TENAPANOR HYDROCHLORIDE
     Indication: Chronic kidney disease
     Route: 048

REACTIONS (4)
  - Death [Fatal]
  - Hospitalisation [Unknown]
  - General physical health deterioration [Unknown]
  - Illness [Unknown]

NARRATIVE: CASE EVENT DATE: 20250104
